FAERS Safety Report 5113595-X (Version None)
Quarter: 2006Q3

REPORT INFORMATION
  Report Type: 
  Country: None (occurrence: None)
  Receive Date: 20060921
  Receipt Date: 20060912
  Transmission Date: 20061208
  Serious: Yes (Hospitalization, Disabling, Other)
  Sender: FDA-Public Use
  Company Number: 2005142135

PATIENT
  Age: 38 Year
  Sex: Male
  Weight: 65.318 kg

DRUGS (4)
  1. XANAX [Suspect]
     Indication: PANIC ATTACK
     Dosage: 3 MG (1 MG, 3 IN 1 D)
     Dates: start: 19940101
  2. VIAGRA [Suspect]
     Indication: ERECTILE DYSFUNCTION
     Dosage: 50 MG (50 MG, AS NECESSARY), ORAL
     Route: 048
  3. PROZAC [Concomitant]
  4. NORCO [Concomitant]

REACTIONS (17)
  - AMNESIA [None]
  - BACK PAIN [None]
  - BALANCE DISORDER [None]
  - BRAIN DAMAGE [None]
  - CEREBRAL HAEMORRHAGE [None]
  - CLAVICLE FRACTURE [None]
  - COMPRESSION FRACTURE [None]
  - DISTURBANCE IN ATTENTION [None]
  - DRUG INEFFECTIVE [None]
  - DYSGEUSIA [None]
  - FALL [None]
  - HYPOSMIA [None]
  - JOINT SWELLING [None]
  - ROTATOR CUFF SYNDROME [None]
  - SKULL FRACTURE [None]
  - THORACIC VERTEBRAL FRACTURE [None]
  - THROMBOSIS [None]
